FAERS Safety Report 7451801-7 (Version None)
Quarter: 2011Q2

REPORT INFORMATION
  Report Type: 
  Country: None (occurrence: None)
  Receive Date: 20110502
  Receipt Date: 20100615
  Transmission Date: 20111010
  Serious: No
  Sender: FDA-Public Use
  Company Number: US-ASTRAZENECA-2010SE27943

PATIENT
  Age: 74 Year
  Sex: Female
  Weight: 54.4 kg

DRUGS (2)
  1. NEXIUM [Suspect]
     Indication: GASTROOESOPHAGEAL REFLUX DISEASE
     Route: 048
     Dates: start: 20100101
  2. CELEBREX [Concomitant]
     Indication: ARTHRITIS

REACTIONS (4)
  - BLOOD PRESSURE INCREASED [None]
  - FLATULENCE [None]
  - DIARRHOEA [None]
  - DRUG DOSE OMISSION [None]
